FAERS Safety Report 17850580 (Version 1)
Quarter: 2020Q2

REPORT INFORMATION
  Report Type: Spontaneous
  Country: US (occurrence: US)
  Receive Date: 20200602
  Receipt Date: 20200602
  Transmission Date: 20200714
  Serious: No
  Sender: FDA-Public Use
  Company Number: US-VERTEX PHARMACEUTICALS-2020-011816

PATIENT
  Age: 27 Year
  Sex: Male

DRUGS (1)
  1. SYMDEKO [Suspect]
     Active Substance: IVACAFTOR\TEZACAFTOR
     Indication: CYSTIC FIBROSIS
     Dosage: (100MG TEZACAFTOR/150MG IVACAFTOR) QAM; (150MG IVACAFTOR) QPM
     Route: 048
     Dates: start: 2020

REACTIONS (4)
  - Anxiety [Unknown]
  - Phobia [Unknown]
  - Constipation [Unknown]
  - Depression [Unknown]

NARRATIVE: CASE EVENT DATE: 2020
